FAERS Safety Report 16244382 (Version 1)
Quarter: 2019Q2

REPORT INFORMATION
  Report Type: Spontaneous
  Country: CA (occurrence: CA)
  Receive Date: 20190426
  Receipt Date: 20190426
  Transmission Date: 20190711
  Serious: Yes (Other)
  Sender: FDA-Public Use
  Company Number: CA-JNJFOC-20190438095

PATIENT
  Age: 74 Year
  Sex: Female
  Weight: 49.89 kg

DRUGS (3)
  1. XARELTO [Suspect]
     Active Substance: RIVAROXABAN
     Indication: DEEP VEIN THROMBOSIS
     Route: 048
  2. SIMBRINZA [Concomitant]
     Active Substance: BRIMONIDINE TARTRATE\BRINZOLAMIDE
     Route: 065
  3. DUOTRAV [Concomitant]
     Active Substance: TIMOLOL MALEATE\TRAVOPROST

REACTIONS (3)
  - Blood creatinine increased [Unknown]
  - Pleural effusion [Unknown]
  - Hydronephrosis [Unknown]
